FAERS Safety Report 8885606 (Version 2)
Quarter: 2012Q4

REPORT INFORMATION
  Report Type: 
  Country: US (occurrence: US)
  Receive Date: 20121101
  Receipt Date: 20121211
  Transmission Date: 20130627
  Serious: No
  Sender: FDA-Public Use
  Company Number: US-PFIZER INC-2012268260

PATIENT
  Age: 60 Year
  Sex: Male
  Weight: 88.44 kg

DRUGS (6)
  1. NEURONTIN [Suspect]
     Indication: DIABETIC PERIPHERAL NEUROPATHY
     Dosage: UNK
     Route: 048
  2. HUMALOG [Concomitant]
     Indication: DIABETES
     Dosage: UNK
  3. LANTUS [Concomitant]
     Indication: DIABETES
     Dosage: UNK
  4. LISINOPRIL [Concomitant]
     Dosage: UNK
  5. MINTUSS MS [Concomitant]
     Dosage: UNK
  6. LACTOSE [Concomitant]
     Dosage: UNK

REACTIONS (2)
  - Limb discomfort [Unknown]
  - Drug ineffective [Unknown]
